FAERS Safety Report 7381726-7 (Version None)
Quarter: 2011Q1

REPORT INFORMATION
  Report Type: 
  Country: None (occurrence: None)
  Receive Date: 20110329
  Receipt Date: 20101022
  Transmission Date: 20110831
  Serious: Yes (Hospitalization, Other)
  Sender: FDA-Public Use
  Company Number: US-BAYER-201014075NA

PATIENT
  Sex: Female
  Weight: 62.273 kg

DRUGS (9)
  1. UNKNOWN DRUG [Concomitant]
  2. DESOGESTREL AND ETHINYL ESTRADIOL [Concomitant]
     Indication: CONTRACEPTION
     Route: 065
     Dates: start: 20091228
  3. YAZ [Suspect]
     Indication: CONTRACEPTION
     Route: 048
     Dates: start: 20070101, end: 20080101
  4. CIPROFLOXACIN [Concomitant]
     Dates: start: 20080416
  5. ZYRTEC [Concomitant]
  6. YASMIN [Suspect]
     Indication: CONTRACEPTION
     Route: 048
  7. LOESTRIN 1.5/30 [Concomitant]
     Indication: CONTRACEPTION
     Route: 065
     Dates: start: 20090408, end: 20090729
  8. PREVACID [Concomitant]
     Dosage: 30 MG, UNK
     Dates: end: 20080421
  9. NSAID'S [Concomitant]
     Indication: PAIN

REACTIONS (4)
  - CHOLECYSTECTOMY [None]
  - RENAL DISORDER [None]
  - CHOLELITHIASIS [None]
  - HYPERKALAEMIA [None]
